FAERS Safety Report 25076713 (Version 1)
Quarter: 2025Q1

REPORT INFORMATION
  Report Type: Report from Study
  Country: US (occurrence: US)
  Receive Date: 20250313
  Receipt Date: 20250313
  Transmission Date: 20250409
  Serious: No
  Sender: SUNOVION
  Company Number: US-SUMITOMO PHARMA SWITZERLAND GMBH-2025SPA002483

PATIENT

DRUGS (12)
  1. ORGOVYX [Suspect]
     Active Substance: RELUGOLIX
     Indication: Prostate cancer
     Dosage: 360 MG, SINGLE
     Route: 048
     Dates: start: 20250207, end: 20250207
  2. ORGOVYX [Suspect]
     Active Substance: RELUGOLIX
     Dosage: 120 MG, QD
     Route: 048
     Dates: start: 20250208
  3. AG Greens [Concomitant]
     Route: 065
  4. ASPIRIN [Concomitant]
     Active Substance: ASPIRIN
     Route: 065
  5. DeFranco Muscle-Mag [Concomitant]
     Route: 065
  6. FLONASE [Concomitant]
     Active Substance: FLUTICASONE PROPIONATE
     Route: 065
  7. PEPCID [Concomitant]
     Active Substance: FAMOTIDINE
     Route: 065
  8. Turmeric complex [Concomitant]
     Route: 065
  9. Nutrafol [Concomitant]
     Route: 065
  10. Super omega 3 [Concomitant]
     Route: 065
  11. Epa/dha [Concomitant]
     Route: 065
  12. Noocube [Concomitant]
     Route: 065

REACTIONS (1)
  - Diarrhoea [Unknown]
